FAERS Safety Report 20375703 (Version 4)
Quarter: 2022Q2

REPORT INFORMATION
  Report Type: Spontaneous
  Country: US (occurrence: US)
  Receive Date: 20220125
  Receipt Date: 20220601
  Transmission Date: 20220721
  Serious: Yes (Other)
  Sender: FDA-Public Use
  Company Number: US-PROCTER_AND_GAMBLE-GS22004237

PATIENT
  Sex: Female

DRUGS (6)
  1. SECRET ANTIPERSPIRANT POWDER FRESH [Suspect]
     Active Substance: ALUMINUM CHLOROHYDRATE
     Dosage: UNDER BOTH ARMS AND FEET 10 SECOND EACH TWICE A DAY EVERY DAY
     Route: 061
     Dates: end: 20211213
  2. SECRET ANTIPERSPIRANT POWDER FRESH [Suspect]
     Active Substance: ALUMINUM CHLOROHYDRATE
     Dosage: ALSO ON GENITAL AREA
     Route: 061
     Dates: end: 20211213
  3. SECRET COOL WATERLILY INVISIBLE [Suspect]
     Active Substance: ALUMINUM ZIRCONIUM TETRACHLOROHYDREX GLY
     Dosage: UNDER BOTH ARMS AND FEET 10 SECOND EACH TWICE A DAY EVERY DAY
     Route: 061
     Dates: end: 20211213
  4. SECRET COOL WATERLILY INVISIBLE [Suspect]
     Active Substance: ALUMINUM ZIRCONIUM TETRACHLOROHYDREX GLY
     Dosage: ALSO ON GENITAL AREA
     Route: 061
     Dates: end: 20211213
  5. SECRET DRY ROSE [Suspect]
     Active Substance: ALUMINUM CHLOROHYDRATE
     Dosage: UNDER BOTH ARMS AND FEET 10 SECOND EACH TWICE A DAY EVERY DAY
     Route: 061
     Dates: end: 20211213
  6. SECRET DRY ROSE [Suspect]
     Active Substance: ALUMINUM CHLOROHYDRATE
     Dosage: ALSO ON GENITAL AREA
     Route: 061
     Dates: end: 20211213

REACTIONS (10)
  - Cervix carcinoma [Unknown]
  - Squamous cell carcinoma of skin [Recovered/Resolved]
  - Cervix haemorrhage uterine [Recovered/Resolved]
  - Macule [Recovered/Resolved]
  - Erythema [Recovered/Resolved]
  - Skin erosion [Recovered/Resolved]
  - Pain of skin [Recovered/Resolved]
  - Product administered at inappropriate site [Unknown]
  - Expired product administered [Unknown]
  - Product contamination chemical [Unknown]

NARRATIVE: CASE EVENT DATE: 19890615
